FAERS Safety Report 4791877-9 (Version None)
Quarter: 2005Q4

REPORT INFORMATION
  Report Type: 
  Country: None (occurrence: None)
  Receive Date: 20051005
  Receipt Date: 20050914
  Transmission Date: 20060501
  Serious: Yes (Death)
  Sender: FDA-Public Use
  Company Number: 2005RR-00755

PATIENT
  Sex: Male

DRUGS (12)
  1. PREDNISOLONE [Suspect]
     Dosage: 5 MG, Q4H,
  2. SPIRIVA [Suspect]
     Dosage: 18 UG, QD, RESPIRATORY
     Route: 055
  3. COMBIVENT [Suspect]
     Dosage: 2.5 ML, QID, RESPIRATORY
     Route: 055
  4. SERETIDE (FLUTICASONE AND SALMETEROL) [Suspect]
     Dosage: 1, BID, RESPIRATORY
     Route: 055
  5. SODIUM CHLORIDE [Suspect]
     Dosage: 0.9%,QD,
  6. AMLODIPINE [Suspect]
     Dosage: 5 MG, BID,
  7. CIPROFLOXACIN [Suspect]
     Dosage: 250 MG, BID,
  8. TRIMETHOPRIM [Suspect]
     Dosage: 200 MG, BID,
  9. FUROSEMIDE [Suspect]
     Dosage: 40 MG, QD,
  10. INSTILLAGEL [Suspect]
     Dosage: 11 ML, QD,
  11. CLOTRIMAZOLE [Suspect]
     Dosage: 1%, BID, TOPICAL
     Route: 061
  12. DERMALO HYDROBASE (PARAFFINS AND ISOPROPYL MYRISTATE) [Suspect]
     Dosage: PRN, TOPICAL
     Route: 061

REACTIONS (4)
  - CARDIAC FAILURE CONGESTIVE [None]
  - CHRONIC OBSTRUCTIVE PULMONARY DISEASE [None]
  - CYSTITIS [None]
  - DIZZINESS [None]
